FAERS Safety Report 16511592 (Version 1)
Quarter: 2019Q3

REPORT INFORMATION
  Report Type: Spontaneous
  Country: US (occurrence: US)
  Receive Date: 20190702
  Receipt Date: 20190702
  Transmission Date: 20191004
  Serious: Yes (Death)
  Sender: FDA-Public Use
  Company Number: US-PROCTER_AND_GAMBLE-GS19067576

PATIENT
  Age: 10 Year
  Sex: Male

DRUGS (1)
  1. PEPTO-BISMOL NOS [Suspect]
     Active Substance: BISMUTH SUBSALICYLATE OR CALCIUM CARBONATE
     Indication: INFLUENZA LIKE ILLNESS
     Dosage: UNK
     Route: 048

REACTIONS (2)
  - Labelled drug-disease interaction medication error [Fatal]
  - Product administered to patient of inappropriate age [Unknown]
